FAERS Safety Report 5065863-8 (Version None)
Quarter: 2006Q3

REPORT INFORMATION
  Report Type: 
  Country: None (occurrence: None)
  Receive Date: 20060728
  Receipt Date: 20060728
  Transmission Date: 20061208
  Serious: Yes (Hospitalization)
  Sender: FDA-Public Use
  Company Number: None

PATIENT
  Age: 66 Year
  Sex: Female
  Weight: 56.2 kg

DRUGS (12)
  1. OXYCODONE AND ACETAMINOPHEN [Suspect]
     Indication: PAIN
     Dosage: 1-2, 4H PRN PAIN
  2. CLONAZEPAM [Suspect]
     Indication: ANXIETY
     Dosage: 1 MG PO BID
     Route: 048
  3. WARFARIN SODIUM [Concomitant]
  4. NEXIUM [Concomitant]
  5. LASIX [Concomitant]
  6. POTASSIUM CHLORIDE [Concomitant]
  7. DILTIAZEM [Concomitant]
  8. PROMETHAZINE [Concomitant]
  9. FOLIC ACID [Concomitant]
  10. DIGITEK [Concomitant]
  11. MEGACE [Concomitant]
  12. ACETAMINOPHEN [Concomitant]

REACTIONS (2)
  - ACCIDENTAL OVERDOSE [None]
  - MENTAL STATUS CHANGES [None]
